FAERS Safety Report 11697227 (Version 1)
Quarter: 2015Q4

REPORT INFORMATION
  Report Type: Spontaneous
  Country: TR (occurrence: TR)
  Receive Date: 20151104
  Receipt Date: 20151104
  Transmission Date: 20160304
  Serious: Yes (Hospitalization, Other)
  Sender: FDA-Public Use
  Company Number: PHHY2015TR142377

PATIENT
  Age: 32 Year
  Sex: Female

DRUGS (1)
  1. METOPROLOL [Suspect]
     Active Substance: METOPROLOL
     Indication: SUICIDE ATTEMPT
     Dosage: 475 MG, UNK
     Route: 065

REACTIONS (6)
  - Hypotension [Recovering/Resolving]
  - Toxicity to various agents [Unknown]
  - Pancreatitis [Recovering/Resolving]
  - Sinus bradycardia [Recovering/Resolving]
  - Urinary tract infection [Unknown]
  - Intentional overdose [Unknown]
